FAERS Safety Report 9921503 (Version 1)
Quarter: 2014Q1

REPORT INFORMATION
  Report Type: Spontaneous
  Country: US (occurrence: US)
  Receive Date: 20140225
  Receipt Date: 20140225
  Transmission Date: 20141002
  Serious: No
  Sender: FDA-Public Use
  Company Number: US-PFIZER INC-2014051077

PATIENT
  Sex: Female

DRUGS (2)
  1. AMLODIPINE [Suspect]
     Indication: HYPERTENSION
     Dosage: 5 MG, 2X/DAY, (3-4 MONTHS)
  2. BYSTOLIC [Concomitant]
     Dosage: UNK

REACTIONS (1)
  - Blood pressure inadequately controlled [Unknown]
